FAERS Safety Report 21109362 (Version 3)
Quarter: 2025Q1

REPORT INFORMATION
  Report Type: Spontaneous
  Country: US (occurrence: US)
  Receive Date: 20220721
  Receipt Date: 20250203
  Transmission Date: 20250408
  Serious: Yes (Hospitalization, Other)
  Sender: BRISTOL-MYERS SQUIBB COMPANY
  Company Number: US-BRISTOL-MYERS SQUIBB COMPANY-2022-074460

PATIENT
  Age: 87 Year
  Sex: Male

DRUGS (1)
  1. ORENCIA [Suspect]
     Active Substance: ABATACEPT
     Indication: Rheumatoid arthritis
     Dates: start: 2022

REACTIONS (3)
  - Myocardial infarction [Unknown]
  - Device malfunction [Unknown]
  - Blood glucose [Unknown]

NARRATIVE: CASE EVENT DATE: 20220629
